FAERS Safety Report 5842791-9 (Version None)
Quarter: 2008Q3

REPORT INFORMATION
  Report Type: 
  Country: None (occurrence: None)
  Receive Date: 20080811
  Receipt Date: 20080729
  Transmission Date: 20090109
  Serious: Yes (Other)
  Sender: FDA-Public Use
  Company Number: 2008-181345-NL

PATIENT
  Age: 21 Year
  Sex: Female

DRUGS (2)
  1. IMPLANON [Suspect]
     Dosage: SUBDERMAL
     Route: 059
  2. LEVOTHYROXINE SODIUM [Concomitant]

REACTIONS (5)
  - ABDOMINAL DISTENSION [None]
  - BREAST TENDERNESS [None]
  - MENSTRUATION IRREGULAR [None]
  - THYROID CANCER [None]
  - WEIGHT INCREASED [None]
